FAERS Safety Report 4430057-3 (Version None)
Quarter: 2004Q3

REPORT INFORMATION
  Report Type: 
  Country: None (occurrence: None)
  Receive Date: 20040817
  Receipt Date: 20040803
  Transmission Date: 20050211
  Serious: Yes (Hospitalization)
  Sender: FDA-Public Use
  Company Number: 2004-BP-06484BP

PATIENT
  Age: 59 Year
  Sex: Male
  Weight: 96.62 kg

DRUGS (5)
  1. VIRAMUNE [Suspect]
     Indication: HIV INFECTION
     Dosage: PO
     Route: 048
     Dates: start: 20040524, end: 20040528
  2. MACROLIN [Suspect]
     Indication: HIV INFECTION
     Dates: start: 20040524, end: 20040528
  3. MACROLIN [Concomitant]
  4. COMBIVIR [Concomitant]
  5. BACTRIM FORTE (BACTRIM) [Concomitant]

REACTIONS (1)
  - PANCREATITIS ACUTE [None]
